FAERS Safety Report 8187096-9 (Version None)
Quarter: 2012Q1

REPORT INFORMATION
  Report Type: 
  Country: None (occurrence: None)
  Receive Date: 20120213
  Receipt Date: 20111122
  Transmission Date: 20120608
  Serious: No
  Sender: FDA-Public Use
  Company Number: 100008674

PATIENT
  Age: 82 Year
  Sex: Female

DRUGS (13)
  1. CRESTOR [Concomitant]
  2. PRILOSEC (OMEPRAZOLE) (OMEPRAZOLE) [Concomitant]
  3. COQ10 (UBIDECARDENONE) (UBIDECARENONE) [Concomitant]
  4. SAVELLA [Suspect]
     Indication: FIBROMYALGIA
     Dosage: 12.5 MG (12.5 MG, 1 IN 1D), ORAL; 25 MG (12.5 MG, 2 IN 1 D), ORAL; (50 MG (25 MG, 2 IN 1 D), ORAL
     Route: 048
     Dates: start: 20090801, end: 20090801
  5. SAVELLA [Suspect]
     Indication: FIBROMYALGIA
     Dosage: 12.5 MG (12.5 MG, 1 IN 1D), ORAL; 25 MG (12.5 MG, 2 IN 1 D), ORAL; (50 MG (25 MG, 2 IN 1 D), ORAL
     Route: 048
     Dates: start: 20090801, end: 20090801
  6. SAVELLA [Suspect]
     Indication: FIBROMYALGIA
     Dosage: 12.5 MG (12.5 MG, 1 IN 1D), ORAL; 25 MG (12.5 MG, 2 IN 1 D), ORAL; (50 MG (25 MG, 2 IN 1 D), ORAL
     Route: 048
     Dates: start: 20090801, end: 20090801
  7. BENICAR [Concomitant]
  8. LEVOXYL (LEVOTHYROXINE SODIUM) (LEVOTHYROXINE SODIUM) [Concomitant]
  9. ATENOLOL [Concomitant]
  10. URSODIOL (URSODEOXYCHOLIC ACID (UROSODEOXYCHOLIC ACID) [Concomitant]
  11. ASPIRIN [Concomitant]
  12. SAVELLA [Suspect]
     Indication: FIBROMYALGIA
     Dosage: 100 MG (50 MG, 2 IN  1 D), ORAL
     Route: 048
     Dates: start: 20090801, end: 20090801
  13. PLAVIX [Concomitant]

REACTIONS (1)
  - INSOMNIA [None]
